FAERS Safety Report 9227073 (Version 1)
Quarter: 2013Q1

REPORT INFORMATION
  Report Type: Spontaneous
  Country: US (occurrence: None)
  Receive Date: 20120927
  Receipt Date: 20120927
  Transmission Date: 20140127
  Serious: Yes (Hospitalization)
  Sender: FDA-Public Use
  Company Number: 2012-01189

PATIENT
  Age: 35 Year
  Sex: Male

DRUGS (4)
  1. VALPROIC ACID (UNKNOWN) [Suspect]
     Indication: CONVULSION
     Dosage: UNKNOWN
  2. CARBAMAZEPINE (UNKNOWN) [Concomitant]
  3. TOPIRANATE (UNKNOWN) [Concomitant]
  4. LAMOTRIGINE (UNKNOWN) [Concomitant]

REACTIONS (3)
  - Hyperammonaemia [None]
  - Somnolence [None]
  - Mental status changes [None]
